FAERS Safety Report 18648094 (Version 2)
Quarter: 2021Q1

REPORT INFORMATION
  Report Type: Spontaneous
  Country: FR (occurrence: FR)
  Receive Date: 20201222
  Receipt Date: 20210204
  Transmission Date: 20210419
  Serious: Yes (Hospitalization, Other)
  Sender: FDA-Public Use
  Company Number: FR-MYLANLABS-2020M1101923

PATIENT
  Age: 76 Year
  Sex: Female

DRUGS (14)
  1. DEPAKINE                           /00228502/ [Interacting]
     Active Substance: VALPROATE SODIUM
     Dosage: 0.5 DF, BID
     Dates: start: 20201106
  2. FLECAINE [Concomitant]
     Active Substance: FLECAINIDE
     Dosage: 2 DF, QD
  3. LAMOTRIGINE MYLAN [Interacting]
     Active Substance: LAMOTRIGINE
     Dosage: 1 DF, QD IN THE EVENING
     Dates: start: 20201123
  4. LOPRESOR                           /00376902/ [Concomitant]
     Active Substance: METOPROLOL TARTRATE
     Dosage: 0.4 DF, QD
  5. LAMOTRIGINE MYLAN [Interacting]
     Active Substance: LAMOTRIGINE
     Dosage: 2 DF, QD
  6. DEPAKINE                           /00228502/ [Interacting]
     Active Substance: VALPROATE SODIUM
     Dosage: SECOND 15 DAYS, ? TABLET OF DEPAKINE DAILYUNK
  7. FLECAINE [Concomitant]
     Active Substance: FLECAINIDE
     Dosage: 2 TABLET DAILY
  8. LAMOTRIGINE MYLAN [Suspect]
     Active Substance: LAMOTRIGINE
     Indication: HAEMORRHAGIC STROKE
     Dosage: 1 TABLET OF LAMOTRIGINE IN THE EVENING
     Dates: start: 20201123
  9. LAMOTRIGINE MYLAN [Interacting]
     Active Substance: LAMOTRIGINE
     Dosage: THIRD 15 DAYS 4 TABLETS OF LAMOTRIGINE DAILY
  10. DEPAKINE                           /00228502/ [Interacting]
     Active Substance: VALPROATE SODIUM
     Dosage: UNK UNK, BID
     Dates: start: 20201106
  11. LAMOTRIGINE MYLAN [Interacting]
     Active Substance: LAMOTRIGINE
     Dosage: 2 TABLETS OF LAMOTRIGINE DAILY
  12. DEPAKINE                           /00228502/ [Interacting]
     Active Substance: VALPROATE SODIUM
     Indication: HAEMORRHAGIC STROKE
     Dosage: FIRST 15 DAYS, ? TABLET OF DEPAKINE BID
     Dates: start: 20201106
  13. LOPRESOR                           /00376902/ [Concomitant]
     Active Substance: METOPROLOL TARTRATE
     Dosage: 1/4 TABLET DAILY
  14. LAMOTRIGINE MYLAN [Interacting]
     Active Substance: LAMOTRIGINE
     Dosage: 4 DF, QD

REACTIONS (9)
  - Skin reaction [Unknown]
  - Toxic epidermal necrolysis [Unknown]
  - Hyperhidrosis [Unknown]
  - Skin exfoliation [Unknown]
  - Paraesthesia [Unknown]
  - Product communication issue [Unknown]
  - Erythema [Unknown]
  - Product dose omission issue [Unknown]
  - Drug interaction [Unknown]

NARRATIVE: CASE EVENT DATE: 20201123
